FAERS Safety Report 24272913 (Version 2)
Quarter: 2024Q3

REPORT INFORMATION
  Report Type: Spontaneous
  Country: JP (occurrence: JP)
  Receive Date: 20240902
  Receipt Date: 20240909
  Transmission Date: 20241016
  Serious: Yes (Hospitalization)
  Sender: UCB
  Company Number: JP-UCBJ-CD202405292UCBPHAPROD

PATIENT
  Age: 41 Year

DRUGS (1)
  1. FINTEPLA [Suspect]
     Active Substance: FENFLURAMINE
     Indication: Severe myoclonic epilepsy of infancy
     Dosage: UNK
     Route: 048
     Dates: start: 20240411

REACTIONS (3)
  - Insomnia [Recovering/Resolving]
  - General physical health deterioration [Recovering/Resolving]
  - Anger [Unknown]
